FAERS Safety Report 20446514 (Version 1)
Quarter: 2022Q1

REPORT INFORMATION
  Report Type: Spontaneous
  Country: US (occurrence: None)
  Receive Date: 20220208
  Receipt Date: 20220208
  Transmission Date: 20220423
  Serious: Yes (Death)
  Sender: FDA-Public Use
  Company Number: US-ROCHE-3021386

PATIENT
  Sex: Female

DRUGS (4)
  1. ESBRIET [Suspect]
     Active Substance: PIRFENIDONE
     Indication: Pulmonary fibrosis
     Route: 048
  2. ATORVASTATIN [Concomitant]
     Active Substance: ATORVASTATIN
  3. FAMOTIDINE [Concomitant]
     Active Substance: FAMOTIDINE
  4. SOTALOL [Concomitant]
     Active Substance: SOTALOL

REACTIONS (1)
  - Death [Fatal]
